FAERS Safety Report 14111251 (Version 1)
Quarter: 2017Q4

REPORT INFORMATION
  Report Type: Report from Study
  Country: US (occurrence: US)
  Receive Date: 20171020
  Receipt Date: 20171020
  Transmission Date: 20180321
  Serious: Yes (Other)
  Sender: FDA-Public Use
  Company Number: US-BAYER-2017-141928

PATIENT
  Age: 40 Year
  Sex: Female

DRUGS (4)
  1. ADEMPAS [Suspect]
     Active Substance: RIOCIGUAT
     Indication: PULMONARY ARTERIAL HYPERTENSION
     Dosage: 2.0 MG, TID
     Route: 048
  2. ADEMPAS [Suspect]
     Active Substance: RIOCIGUAT
     Indication: PULMONARY ARTERIAL HYPERTENSION
     Dosage: 1 MG, TID
     Route: 048
     Dates: start: 20170525
  3. ADEMPAS [Suspect]
     Active Substance: RIOCIGUAT
     Indication: PULMONARY ARTERIAL HYPERTENSION
     Dosage: 1.5 MG, TID
     Route: 048
  4. ADEMPAS [Suspect]
     Active Substance: RIOCIGUAT
     Indication: PULMONARY ARTERIAL HYPERTENSION
     Dosage: UNK

REACTIONS (16)
  - Swelling face [None]
  - Dyspnoea [None]
  - Dyspnoea [Recovering/Resolving]
  - Dizziness [Not Recovered/Not Resolved]
  - Joint swelling [None]
  - Peripheral swelling [None]
  - Headache [Recovering/Resolving]
  - Drug dose omission [None]
  - Swelling [None]
  - Muscle spasms [None]
  - Hypoaesthesia [Not Recovered/Not Resolved]
  - Chest pain [None]
  - Musculoskeletal stiffness [None]
  - Hypoaesthesia [None]
  - Peripheral coldness [None]
  - Peripheral swelling [None]

NARRATIVE: CASE EVENT DATE: 201705
